FAERS Safety Report 17812298 (Version 2)
Quarter: 2020Q3

REPORT INFORMATION
  Report Type: Report from Study
  Country: US (occurrence: US)
  Receive Date: 20200521
  Receipt Date: 20200930
  Transmission Date: 20201102
  Serious: Yes (Other)
  Sender: FDA-Public Use
  Company Number: US-AMGEN-USASP2020079010

PATIENT
  Age: 64 Year
  Sex: Male

DRUGS (1)
  1. REPATHA [Suspect]
     Active Substance: EVOLOCUMAB
     Indication: HYPERCHOLESTEROLAEMIA
     Dosage: 140 MILLIGRAM, Q2WK
     Route: 065

REACTIONS (5)
  - Skin mass [Unknown]
  - Rash [Not Recovered/Not Resolved]
  - Aortic valve stenosis [Unknown]
  - Cardiac operation [Unknown]
  - Pain of skin [Unknown]

NARRATIVE: CASE EVENT DATE: 202003
